FAERS Safety Report 7584806-6 (Version None)
Quarter: 2011Q2

REPORT INFORMATION
  Report Type: 
  Country: None (occurrence: None)
  Receive Date: 20110630
  Receipt Date: 20110518
  Transmission Date: 20111010
  Serious: Yes (Other)
  Sender: FDA-Public Use
  Company Number: PHHY2011IE42926

PATIENT
  Age: 9 Year
  Weight: 42 kg

DRUGS (1)
  1. RITALIN [Suspect]

REACTIONS (1)
  - HYPOTENSION [None]
